FAERS Safety Report 7188807 (Version 4)
Quarter: 2013Q2

REPORT INFORMATION
  Report Type: Spontaneous
  Country: US (occurrence: US)
  Receive Date: 20091125
  Receipt Date: 20130419
  Transmission Date: 20140414
  Serious: Yes (Hospitalization)
  Sender: FDA-Public Use
  Company Number: US-BIOGENIDEC-2009BI037678

PATIENT
  Age: 42 Year
  Sex: Female
  Weight: 72 kg

DRUGS (3)
  1. AVONEX [Suspect]
     Indication: MULTIPLE SCLEROSIS
     Route: 030
     Dates: start: 20081227
  2. AMPYRA [Concomitant]
     Indication: MULTIPLE SCLEROSIS
  3. STEROID (NOS) [Concomitant]

REACTIONS (22)
  - Pulmonary embolism [Recovered/Resolved]
  - Infusion site phlebitis [Not Recovered/Not Resolved]
  - Factor V Leiden mutation [Not Recovered/Not Resolved]
  - Cervical spinal stenosis [Recovered/Resolved]
  - Spinal column injury [Recovered/Resolved]
  - Intervertebral disc protrusion [Recovered/Resolved]
  - Musculoskeletal disorder [Not Recovered/Not Resolved]
  - Renal impairment [Unknown]
  - Contusion [Not Recovered/Not Resolved]
  - Incision site pain [Not Recovered/Not Resolved]
  - Balance disorder [Not Recovered/Not Resolved]
  - Memory impairment [Not Recovered/Not Resolved]
  - Amnesia [Unknown]
  - Hypoaesthesia [Unknown]
  - Gait disturbance [Unknown]
  - Diabetes mellitus [Not Recovered/Not Resolved]
  - Pain [Recovered/Resolved]
  - Pyrexia [Recovered/Resolved]
  - Injection site pain [Recovered/Resolved]
  - Depression [Unknown]
  - Influenza like illness [Unknown]
  - Dyspnoea [Not Recovered/Not Resolved]
